FAERS Safety Report 5041324-7 (Version None)
Quarter: 2006Q2

REPORT INFORMATION
  Report Type: 
  Country: None (occurrence: None)
  Receive Date: 20060626
  Receipt Date: 20060617
  Transmission Date: 20061013
  Serious: Yes (Hospitalization)
  Sender: FDA-Public Use
  Company Number: 2006-06-1240

PATIENT
  Age: 51 Year
  Sex: Male

DRUGS (10)
  1. PEG-INTRON [Suspect]
     Indication: HEPATITIS C
     Dosage: SUBCUTANEOUS
     Route: 058
     Dates: start: 20060419, end: 20060607
  2. RIBAVIRIN [Suspect]
     Indication: HEPATITIS C
     Dosage: ORAL
     Route: 048
     Dates: start: 20060419, end: 20060607
  3. AVANDAMET (ROSIGLITAZONE MALEATE AND METFORMIN HYDROCHLORIDE) TABLETS [Concomitant]
  4. CYMBALTA [Concomitant]
  5. EFFEXOR XR (VENLAFAXINE HCL) SUSTAINED RELEASE CAPSULES [Concomitant]
  6. GLUCOTROL XL [Concomitant]
  7. HYDROCHLOROTHIAZIDE TABLETS [Concomitant]
  8. INSULIN HUMAN INJECTION, ISOPHANE INJECTABLE SUSPENSION [Concomitant]
  9. LOTREL [Concomitant]
  10. PROTONIX (PANTOPRAZOLE SODIUM) TABLETS [Concomitant]

REACTIONS (3)
  - HEPATIC FAILURE [None]
  - HEPATIC PAIN [None]
  - POST PROCEDURAL COMPLICATION [None]
